FAERS Safety Report 5256806-2 (Version None)
Quarter: 2007Q1

REPORT INFORMATION
  Report Type: 
  Country: None (occurrence: None)
  Receive Date: 20070306
  Receipt Date: 20070227
  Transmission Date: 20070707
  Serious: Yes (Hospitalization)
  Sender: FDA-Public Use
  Company Number: JP-BOEHRINGER INGELHEIM PHARMACEUTICALS, INC.-2007-BP-00406NB

PATIENT
  Sex: Male
  Weight: 58.5 kg

DRUGS (4)
  1. MICARDIS [Suspect]
     Indication: HYPERTENSION
     Route: 048
     Dates: start: 20060412, end: 20070102
  2. AMLODIPINE [Suspect]
     Indication: HYPERTENSION
     Route: 048
     Dates: start: 20051219, end: 20070102
  3. ALFAROL [Concomitant]
     Route: 048
     Dates: end: 20070102
  4. FOSAMAC [Concomitant]
     Route: 048
     Dates: start: 20041020, end: 20070102

REACTIONS (7)
  - ACUTE MYOCARDIAL INFARCTION [None]
  - ALCOHOL USE [None]
  - DEPRESSED LEVEL OF CONSCIOUSNESS [None]
  - HYPOGLYCAEMIA [None]
  - HYPOTENSION [None]
  - ORAL INTAKE REDUCED [None]
  - VENTRICULAR TACHYCARDIA [None]
